FAERS Safety Report 7260847-3 (Version None)
Quarter: 2011Q1

REPORT INFORMATION
  Report Type: 
  Country: None (occurrence: None)
  Receive Date: 20110130
  Receipt Date: 20101122
  Transmission Date: 20110831
  Serious: No
  Sender: FDA-Public Use
  Company Number: US-ABBOTT-10P-163-0687258-00

PATIENT
  Age: 38 Year
  Sex: Male

DRUGS (3)
  1. VITAMIN B SUPPLEMENT OVER THE COUNTER [Concomitant]
     Indication: PRODUCT USED FOR UNKNOWN INDICATION
     Dosage: DAILY
     Route: 048
  2. ALKA SELTZER [Concomitant]
     Indication: DYSPEPSIA
     Route: 048
  3. HUMIRA [Suspect]
     Indication: PSORIASIS
     Dates: start: 20080101, end: 20101120

REACTIONS (2)
  - NASOPHARYNGITIS [None]
  - HYPERHIDROSIS [None]
